FAERS Safety Report 7680762-0 (Version None)
Quarter: 2011Q3

REPORT INFORMATION
  Report Type: 
  Country: None (occurrence: None)
  Receive Date: 20110812
  Receipt Date: 20110801
  Transmission Date: 20111222
  Serious: Yes (Hospitalization)
  Sender: FDA-Public Use
  Company Number: CA-JNJFOC-20110409013

PATIENT
  Sex: Female
  Weight: 71 kg

DRUGS (1)
  1. REMICADE [Suspect]
     Indication: RHEUMATOID ARTHRITIS
     Dosage: PRODUCT DUE TO BE REINTRODUCED 19-MAY-2011
     Route: 042
     Dates: start: 20100507, end: 20110101

REACTIONS (4)
  - SWELLING FACE [None]
  - CEREBROVASCULAR ACCIDENT [None]
  - EYE INFECTION VIRAL [None]
  - GINGIVAL SWELLING [None]
